FAERS Safety Report 10021411 (Version 1)
Quarter: 2014Q1

REPORT INFORMATION
  Report Type: Spontaneous
  Country: US (occurrence: US)
  Receive Date: 20140319
  Receipt Date: 20140319
  Transmission Date: 20141002
  Serious: No
  Sender: FDA-Public Use
  Company Number: US-LUNDBECK-DKLU1097679

PATIENT
  Age: 43 Year
  Sex: Female

DRUGS (2)
  1. SABRIL (TABLET) [Suspect]
     Indication: TEMPORAL LOBE EPILEPSY
     Route: 048
     Dates: start: 20131227
  2. SABRIL (TABLET) [Suspect]
     Indication: EPILEPSY

REACTIONS (1)
  - Sinus headache [Unknown]
